FAERS Safety Report 18843705 (Version 1)
Quarter: 2021Q1

REPORT INFORMATION
  Report Type: Report from Study
  Country: US (occurrence: US)
  Receive Date: 20210203
  Receipt Date: 20210203
  Transmission Date: 20210419
  Serious: No
  Sender: FDA-Public Use
  Company Number: US-EXELIXIS-CABO-20031681

PATIENT
  Age: 53 Year
  Sex: Female

DRUGS (1)
  1. CABOMETYX [Suspect]
     Active Substance: CABOZANTINIB S-MALATE
     Indication: RENAL CANCER
     Dosage: 40 MG, QD
     Route: 048
     Dates: start: 20200305

REACTIONS (5)
  - Acne [Recovering/Resolving]
  - Swelling face [Unknown]
  - Blister [Unknown]
  - Ageusia [Unknown]
  - Nail disorder [Unknown]

NARRATIVE: CASE EVENT DATE: 202007
